FAERS Safety Report 18120172 (Version 1)
Quarter: 2020Q3

REPORT INFORMATION
  Report Type: Spontaneous
  Country: US (occurrence: US)
  Receive Date: 20200806
  Receipt Date: 20200806
  Transmission Date: 20201103
  Serious: No
  Sender: FDA-Public Use
  Company Number: US-ABBVIE-20K-163-3435173-00

PATIENT
  Age: 25 Year
  Sex: Female
  Weight: 45.4 kg

DRUGS (5)
  1. DEPAKOTE ER [Suspect]
     Active Substance: DIVALPROEX SODIUM
     Indication: EPILEPSY
     Dosage: 1 TAB IN MORNING,1 TAB IN EVENING
     Route: 048
     Dates: start: 20200601, end: 202006
  2. DEPAKOTE ER [Suspect]
     Active Substance: DIVALPROEX SODIUM
     Route: 048
     Dates: start: 202006
  3. TRILEPTAL [Concomitant]
     Active Substance: OXCARBAZEPINE
     Indication: EPILEPSY
  4. NALTREXONE [Concomitant]
     Active Substance: NALTREXONE
     Indication: AUTOIMMUNE DISORDER
  5. NALTREXONE [Concomitant]
     Active Substance: NALTREXONE
     Indication: PAIN
     Dosage: LOW DOSE

REACTIONS (3)
  - Abdominal pain [Recovered/Resolved]
  - Diarrhoea [Recovered/Resolved]
  - Abdominal discomfort [Recovered/Resolved]

NARRATIVE: CASE EVENT DATE: 20200601
